FAERS Safety Report 5468451-4 (Version None)
Quarter: 2007Q3

REPORT INFORMATION
  Report Type: 
  Country: None (occurrence: None)
  Receive Date: 20070926
  Receipt Date: 20070920
  Transmission Date: 20080115
  Serious: Yes (Other)
  Sender: FDA-Public Use
  Company Number: US-BRISTOL-MYERS SQUIBB COMPANY-13916465

PATIENT
  Sex: Female

DRUGS (1)
  1. SPRYCEL [Suspect]
     Indication: CHRONIC MYELOID LEUKAEMIA
     Dates: start: 20070201, end: 20070801

REACTIONS (5)
  - DIARRHOEA [None]
  - HEADACHE [None]
  - NAUSEA [None]
  - RASH [None]
  - SUICIDAL IDEATION [None]
